FAERS Safety Report 18772188 (Version 1)
Quarter: 2021Q1

REPORT INFORMATION
  Report Type: Spontaneous
  Country: US (occurrence: US)
  Receive Date: 20210121
  Receipt Date: 20210121
  Transmission Date: 20210419
  Serious: No
  Sender: FDA-Public Use
  Company Number: US-PERRIGO-20US008091

PATIENT
  Age: 21 Year
  Sex: Male
  Weight: 131.52 kg

DRUGS (5)
  1. NYSTATIN. [Suspect]
     Active Substance: NYSTATIN
     Indication: PAIN
  2. LISINOPRIL. [Concomitant]
     Active Substance: LISINOPRIL
     Indication: HYPERTENSION
     Dosage: UNK UNK
     Route: 065
     Dates: start: 2020
  3. NYSTATIN. [Suspect]
     Active Substance: NYSTATIN
     Indication: FUNGAL SKIN INFECTION
     Dosage: SMALL AMOUNT, BID
     Route: 061
     Dates: start: 20200505, end: 20200511
  4. NYSTATIN. [Suspect]
     Active Substance: NYSTATIN
     Indication: SKIN BURNING SENSATION
  5. NYSTATIN. [Suspect]
     Active Substance: NYSTATIN
     Indication: SKIN IRRITATION

REACTIONS (4)
  - Vision blurred [Not Recovered/Not Resolved]
  - Condition aggravated [Recovered/Resolved]
  - Tunnel vision [Not Recovered/Not Resolved]
  - Eye pain [Not Recovered/Not Resolved]

NARRATIVE: CASE EVENT DATE: 202005
